FAERS Safety Report 8495586-4 (Version None)
Quarter: 2012Q2

REPORT INFORMATION
  Report Type: 
  Country: None (occurrence: None)
  Receive Date: 20120403
  Receipt Date: 20120610
  Transmission Date: 20120825
  Serious: Yes (Other)
  Sender: FDA-Public Use
  Company Number: 2-0611-59

PATIENT
  Sex: Female

DRUGS (2)
  1. MARY KAY CREAMS [Concomitant]
  2. DERMA-SMOOTHE/FS SCALP OIL HILL DERMACEUTICALS [Suspect]
     Indication: PSORIASIS
     Dosage: TOPICAL
     Route: 061

REACTIONS (2)
  - HEADACHE [None]
  - BURNING SENSATION [None]
